FAERS Safety Report 13595396 (Version 5)
Quarter: 2017Q3

REPORT INFORMATION
  Report Type: Spontaneous
  Country: JP (occurrence: JP)
  Receive Date: 20170531
  Receipt Date: 20170925
  Transmission Date: 20171127
  Serious: Yes (Other)
  Sender: FDA-Public Use
  Company Number: JP-009507513-1705JPN002668J

PATIENT
  Age: 46 Year
  Sex: Female

DRUGS (6)
  1. FULMETA:OINTMENT [Concomitant]
     Indication: DERMATITIS ATOPIC
     Dosage: UNK UNK, ONCE
     Route: 061
     Dates: start: 20170403
  2. DESALEX TABLETS 5MG [Suspect]
     Active Substance: DESLORATADINE
     Dosage: 5 MG, QD
     Route: 048
     Dates: start: 20170513, end: 20170516
  3. HIRUDOID [Concomitant]
     Active Substance: GLYCOSAMINOGLYCANS
     Indication: DERMATITIS ATOPIC
     Dosage: UNK UNK, QD
     Route: 061
     Dates: start: 20170513
  4. RINDERON VG [Concomitant]
     Active Substance: BETAMETHASONE VALERATE\GENTAMICIN SULFATE
     Indication: DERMATITIS ATOPIC
     Dosage: UNK UNK, ONCE
     Route: 061
     Dates: start: 20170513
  5. DESALEX TABLETS 5MG [Suspect]
     Active Substance: DESLORATADINE
     Indication: ECZEMA
     Dosage: 5 MG, QD
     Route: 048
     Dates: start: 20170403, end: 20170405
  6. PROTOPIC [Concomitant]
     Active Substance: TACROLIMUS
     Indication: DERMATITIS ATOPIC
     Dosage: UNK UNK, ONCE
     Route: 061
     Dates: start: 20170403

REACTIONS (6)
  - Depressed level of consciousness [Recovered/Resolved]
  - Abdominal pain [Recovered/Resolved]
  - Somnolence [Recovered/Resolved]
  - Depressed level of consciousness [Recovered/Resolved]
  - Abdominal pain [Recovered/Resolved]
  - Somnolence [Recovered/Resolved]

NARRATIVE: CASE EVENT DATE: 20170403
